FAERS Safety Report 6189350-9 (Version None)
Quarter: 2009Q2

REPORT INFORMATION
  Report Type: 
  Country: None (occurrence: None)
  Receive Date: 20090512
  Receipt Date: 20090424
  Transmission Date: 20091009
  Serious: Yes (Hospitalization, Other)
  Sender: FDA-Public Use
  Company Number: ADE# 09-163DPR

PATIENT
  Age: 86 Year
  Sex: Female

DRUGS (18)
  1. DIGOXIN [Suspect]
     Indication: CARDIAC FAILURE CONGESTIVE
     Dosage: MANY YEARS AGO
  2. ADVAIR DISKUS 250/50 [Concomitant]
  3. ASPIRIN [Concomitant]
  4. IRON [Concomitant]
  5. ARICEPT [Concomitant]
  6. LIPITOR [Concomitant]
  7. SPIRONOLACTONE [Concomitant]
  8. NANENDA 10MG [Concomitant]
  9. POTASSIUM 20MEQ [Concomitant]
  10. FUROSEMIDE 40MG [Concomitant]
  11. LEXAPRO [Concomitant]
  12. OMEPRAZOLE [Concomitant]
  13. LEVOXYL .025MG [Concomitant]
  14. TRAZODONE HCL [Concomitant]
  15. RISPERIDONE [Concomitant]
  16. ZORBABIDE [Concomitant]
  17. METOPROLOL [Concomitant]
  18. CYANOCOBALAMIN [Concomitant]

REACTIONS (7)
  - CARDIOACTIVE DRUG LEVEL DECREASED [None]
  - DEMENTIA [None]
  - FOETAL HEART RATE ABNORMAL [None]
  - HEART RATE INCREASED [None]
  - SLEEP DISORDER [None]
  - UNRESPONSIVE TO STIMULI [None]
  - UPPER GASTROINTESTINAL HAEMORRHAGE [None]
